FAERS Safety Report 20906318 (Version 1)
Quarter: 2022Q2

REPORT INFORMATION
  Report Type: Spontaneous
  Country: US (occurrence: US)
  Receive Date: 20220602
  Receipt Date: 20220602
  Transmission Date: 20220720
  Serious: Yes (Other)
  Sender: FDA-Public Use
  Company Number: US-MYLANLABS-2022M1041290

PATIENT
  Age: 55 Year
  Sex: Male

DRUGS (4)
  1. AMIODARONE [Suspect]
     Active Substance: AMIODARONE
     Indication: Product used for unknown indication
     Dosage: 200 MILLIGRAM, QD (STARTED APPROXIMATELY ONE YEAR PRIOR TO CURRENT PRESENTATION; MOST RECENT DOSE RE
     Route: 065
  2. METHIMAZOLE [Suspect]
     Active Substance: METHIMAZOLE
     Indication: Hyperthyroidism
     Dosage: 10 MILLIGRAM, TID (FOR 5 DAYS)
     Route: 065
  3. METHIMAZOLE [Suspect]
     Active Substance: METHIMAZOLE
     Dosage: 15 MILLIGRAM, TID [(FOR 5 DAYS)]
     Route: 065
  4. METHIMAZOLE [Suspect]
     Active Substance: METHIMAZOLE
     Dosage: 20 MILLIGRAM, QD (20MG DAILY FOR THE FOLLOWING ONE MONTH)
     Route: 065

REACTIONS (2)
  - Hyperthyroidism [Recovered/Resolved]
  - Agranulocytosis [Recovering/Resolving]
